FAERS Safety Report 9821243 (Version 7)
Quarter: 2014Q3

REPORT INFORMATION
  Report Type: Spontaneous
  Country: US (occurrence: US)
  Receive Date: 20140116
  Receipt Date: 20140929
  Transmission Date: 20150326
  Serious: Yes (Life-Threatening, Hospitalization, Disabling, Other)
  Sender: FDA-Public Use
  Company Number: US-MERCK-1401USA006793

PATIENT
  Sex: Female
  Weight: 97.52 kg

DRUGS (2)
  1. JANUVIA [Suspect]
     Active Substance: SITAGLIPTIN PHOSPHATE
     Indication: TYPE 2 DIABETES MELLITUS
     Dosage: 100 MG, QD
     Route: 048
     Dates: start: 20090224
  2. JANUVIA [Suspect]
     Active Substance: SITAGLIPTIN PHOSPHATE
     Dosage: 100MG 1/2 TABLET QD
     Route: 048

REACTIONS (49)
  - Pancreatic neuroendocrine tumour [Not Recovered/Not Resolved]
  - Hyperhidrosis [Unknown]
  - Paranasal sinus hypersecretion [Unknown]
  - Spinal osteoarthritis [Unknown]
  - Abdominal distension [Unknown]
  - Knee arthroplasty [Unknown]
  - Urinary tract infection [Recovering/Resolving]
  - Pruritus [Unknown]
  - Sinus disorder [Unknown]
  - Medical device implantation [Unknown]
  - Vascular calcification [Unknown]
  - Postoperative respiratory failure [Unknown]
  - Lipoma [Unknown]
  - Dyspnoea [Unknown]
  - Change of bowel habit [Unknown]
  - Neuropathy peripheral [Unknown]
  - Malaise [Unknown]
  - Hiatus hernia [Unknown]
  - Blood creatinine increased [Unknown]
  - Back pain [Recovered/Resolved]
  - Encephalopathy [Recovered/Resolved]
  - Leukocytosis [Recovering/Resolving]
  - Gastric polyps [Unknown]
  - Anxiety [Not Recovered/Not Resolved]
  - Diverticulum [Unknown]
  - Blood urine present [Unknown]
  - Suture related complication [Unknown]
  - Skin cancer [Unknown]
  - Pancreaticoduodenectomy [Unknown]
  - Anaemia postoperative [Recovering/Resolving]
  - Spinal laminectomy [Unknown]
  - Diabetic nephropathy [Unknown]
  - Nephrolithiasis [Unknown]
  - Incontinence [Unknown]
  - Neck pain [Unknown]
  - Balance disorder [Unknown]
  - Sleep apnoea syndrome [Unknown]
  - Hypoglycaemia [Unknown]
  - Escherichia urinary tract infection [Unknown]
  - Pyelonephritis [Recovering/Resolving]
  - Dry eye [Unknown]
  - Haemorrhoids [Unknown]
  - Syncope [Unknown]
  - Urinary tract infection [Unknown]
  - Induration [Unknown]
  - Fungal infection [Unknown]
  - Nocturia [Unknown]
  - Stress [Unknown]
  - Diarrhoea [Unknown]

NARRATIVE: CASE EVENT DATE: 20090224
